FAERS Safety Report 19361913 (Version 1)
Quarter: 2021Q2

REPORT INFORMATION
  Report Type: Report from Study
  Country: FR (occurrence: FR)
  Receive Date: 20210601
  Receipt Date: 20210601
  Transmission Date: 20210717
  Serious: Yes (Death, Other)
  Sender: FDA-Public Use
  Company Number: FR-PFIZER INC-2021616678

PATIENT
  Sex: Female

DRUGS (2)
  1. PACLITAXEL HOSPIRA [Suspect]
     Active Substance: PACLITAXEL
     Indication: OVARIAN CANCER
     Dosage: 175 MG/M2, CYCLIC EVERY 3 WEEKS
     Route: 042
  2. CARBOPLATIN. [Suspect]
     Active Substance: CARBOPLATIN
     Indication: OVARIAN CANCER
     Dosage: 5 MG/ML, CYCLIC AREA UNDER THE CURVE (AUC) 5MG/ML MIN,
     Route: 042

REACTIONS (3)
  - Renal failure [Fatal]
  - Cardiac failure [Fatal]
  - Febrile neutropenia [Fatal]
